FAERS Safety Report 9751620 (Version 3)
Quarter: 2014Q1

REPORT INFORMATION
  Report Type: Report from Study
  Country: US (occurrence: US)
  Receive Date: 20131212
  Receipt Date: 20140218
  Transmission Date: 20141002
  Serious: Yes (Other)
  Sender: FDA-Public Use
  Company Number: US-ABBVIE-13P-163-1176254-00

PATIENT
  Sex: Male
  Weight: 79.45 kg

DRUGS (8)
  1. HUMIRA [Suspect]
     Indication: COLITIS ULCERATIVE
     Dosage: DAY 1
     Dates: start: 20131017, end: 20131017
  2. HUMIRA [Suspect]
     Route: 058
     Dates: start: 20131031, end: 20131031
  3. TEMAZEPAM [Concomitant]
     Indication: INSOMNIA
  4. TEMAZEPAM [Concomitant]
     Dates: start: 201401
  5. UNKNOWN MEDICATION [Concomitant]
     Indication: COLITIS ULCERATIVE
  6. SIMVASTATIN [Concomitant]
     Indication: PRODUCT USED FOR UNKNOWN INDICATION
     Dosage: 1/2 TAB DAILY
  7. NIACIN [Concomitant]
     Indication: PRODUCT USED FOR UNKNOWN INDICATION
  8. VICODIN [Concomitant]
     Indication: BACK PAIN

REACTIONS (7)
  - Intervertebral disc protrusion [Not Recovered/Not Resolved]
  - Lumbar spinal stenosis [Not Recovered/Not Resolved]
  - Back pain [Unknown]
  - Weight decreased [Recovered/Resolved]
  - Sleep disorder [Not Recovered/Not Resolved]
  - Blood cholesterol increased [Not Recovered/Not Resolved]
  - Neuralgia [Not Recovered/Not Resolved]
